FAERS Safety Report 7757358-5 (Version None)
Quarter: 2011Q3

REPORT INFORMATION
  Report Type: 
  Country: None (occurrence: None)
  Receive Date: 20110916
  Receipt Date: 20110909
  Transmission Date: 20111222
  Serious: Yes (Life-Threatening, Other)
  Sender: FDA-Public Use
  Company Number: PHHY2011DK79759

PATIENT
  Age: 34 Year
  Sex: Female

DRUGS (3)
  1. ONDANSETRON HCL [Suspect]
     Route: 048
     Dates: start: 20080122, end: 20080125
  2. NOXAFIL [Interacting]
     Indication: HEPATIC CANDIDIASIS
     Route: 048
     Dates: start: 20071020, end: 20080125
  3. PANTOPRAZOLE SODIUM [Concomitant]
     Dates: start: 20080122, end: 20080125

REACTIONS (6)
  - BRADYARRHYTHMIA [None]
  - BRADYCARDIA [None]
  - DRUG INTERACTION [None]
  - ARRHYTHMIA [None]
  - ATRIOVENTRICULAR BLOCK SECOND DEGREE [None]
  - SINUS TACHYCARDIA [None]
